FAERS Safety Report 12287675 (Version 3)
Quarter: 2016Q2

REPORT INFORMATION
  Report Type: Spontaneous
  Country: JP (occurrence: JP)
  Receive Date: 20160420
  Receipt Date: 20160520
  Transmission Date: 20160815
  Serious: Yes (Other)
  Sender: FDA-Public Use
  Company Number: JP-009507513-1604JPN009355

PATIENT
  Age: 64 Year
  Sex: Male

DRUGS (14)
  1. REBETOL [Suspect]
     Active Substance: RIBAVIRIN
     Indication: CHRONIC HEPATITIS C
     Dosage: 600 MG, QD
     Route: 048
     Dates: start: 20160329
  2. TAMBOCOR [Suspect]
     Active Substance: FLECAINIDE ACETATE
     Dosage: 200 MG, QD
     Route: 048
     Dates: start: 20160227
  3. URSO [Concomitant]
     Active Substance: URSODIOL
     Dosage: DAILY DOSAGE UNKNOWN, FORMULATION: POR
     Route: 048
  4. SPIRONOLACTONE. [Concomitant]
     Active Substance: SPIRONOLACTONE
     Dosage: DAILY DOSAGE UNKNOWN, FORMULATION: POR
     Route: 048
  5. MUCOSOLVAN [Concomitant]
     Active Substance: AMBROXOL HYDROCHLORIDE
     Dosage: DAILY DOSAGE UNKNOWN, FORMULATION: POR
     Route: 048
  6. DIART [Concomitant]
     Active Substance: AZOSEMIDE
     Dosage: UNK
     Route: 048
  7. LANSOPRAZOLE. [Concomitant]
     Active Substance: LANSOPRAZOLE
     Dosage: DAILY DOSAGE UNKNOWN, FORMULATION: POR
  8. ASVERIN (TIPEPIDINE HIBENZATE) [Concomitant]
     Active Substance: TIPEPIDINE HIBENZATE
     Dosage: DAILY DOSAGE UNKNOWN, FORMULATION: POR
     Route: 048
  9. SOVALDI [Suspect]
     Active Substance: SOFOSBUVIR
     Dosage: 400 MG ADMINSTRATING EVERY OTHER DAY
     Route: 048
     Dates: start: 20160405
  10. ANCARON [Suspect]
     Active Substance: AMIODARONE HYDROCHLORIDE
     Dosage: 200 MG, QD
     Dates: start: 20150227, end: 20160226
  11. ARTIST [Concomitant]
     Active Substance: CARVEDILOL
     Dosage: DAILY DOSAGE UNKNOWN, FORMULATION: POR
     Route: 048
  12. WARFARIN [Concomitant]
     Active Substance: WARFARIN
     Dosage: DAILY DOSAGE UNKNOWN, FORMULATION: POR
     Route: 048
  13. SOVALDI [Suspect]
     Active Substance: SOFOSBUVIR
     Indication: CHRONIC HEPATITIS C
     Dosage: 400 MG, QD, DIVIDED DOSE FREQUENCY UNKNOWN
     Route: 048
     Dates: start: 20160329, end: 20160404
  14. AZILVA [Concomitant]
     Active Substance: AZILSARTAN KAMEDOXOMIL
     Dosage: DAILY DOSAGE UNKNOWN, FORMULATION: POR
     Route: 048

REACTIONS (5)
  - Renal impairment [Unknown]
  - Cardiac pacemaker insertion [Unknown]
  - Bradycardia [Unknown]
  - Dizziness [Unknown]
  - Sinus node dysfunction [Unknown]

NARRATIVE: CASE EVENT DATE: 20160401
